FAERS Safety Report 4874100-6 (Version None)
Quarter: 2006Q1

REPORT INFORMATION
  Report Type: 
  Country: None (occurrence: None)
  Receive Date: 20060104
  Receipt Date: 20051218
  Transmission Date: 20060701
  Serious: Yes (Hospitalization, Other)
  Sender: FDA-Public Use
  Company Number: 2005169464

PATIENT
  Sex: Female

DRUGS (10)
  1. NEURONTIN [Suspect]
     Indication: NEUROPATHY
     Dosage: ORAL
     Route: 048
     Dates: start: 19990101, end: 19990101
  2. LYRICA [Suspect]
     Indication: NEUROPATHY
     Dosage: 225 MG (75 MG, 3 IN 1 D), ORAL
     Route: 048
     Dates: start: 20051001
  3. HYZAAR [Concomitant]
  4. SYNTHROID [Concomitant]
  5. TRICOR [Concomitant]
  6. EFFEXOR [Concomitant]
  7. KLONOPIN [Concomitant]
  8. TALWIN [Concomitant]
  9. ZYRTEC [Concomitant]
  10. NEXIUM [Concomitant]

REACTIONS (15)
  - AMMONIA INCREASED [None]
  - CARCINOID TUMOUR [None]
  - DIABETES MELLITUS [None]
  - DISEASE PROGRESSION [None]
  - DRUG INEFFECTIVE [None]
  - DRUG TOXICITY [None]
  - ECONOMIC PROBLEM [None]
  - HEADACHE [None]
  - HYPERHIDROSIS [None]
  - LIVER DISORDER [None]
  - MENTAL DISORDER [None]
  - NEUROPATHY [None]
  - SOMNOLENCE [None]
  - STOMACH DISCOMFORT [None]
  - TREATMENT NONCOMPLIANCE [None]
